FAERS Safety Report 19150521 (Version 2)
Quarter: 2021Q2

REPORT INFORMATION
  Report Type: Report from Study
  Country: BR (occurrence: BR)
  Receive Date: 20210418
  Receipt Date: 20210511
  Transmission Date: 20210717
  Serious: Yes (Hospitalization, Other)
  Sender: FDA-Public Use
  Company Number: NVSC2021BR083842

PATIENT
  Age: 78 Year
  Sex: Female
  Weight: 65 kg

DRUGS (7)
  1. TEGRETOL XR [Suspect]
     Active Substance: CARBAMAZEPINE
     Indication: SEIZURE
     Dosage: 1 TABLET AND A HALF, QD
     Route: 048
  2. DIAZEPAM. [Concomitant]
     Active Substance: DIAZEPAM
     Indication: SEIZURE
     Dosage: 1 DF, QD (AT NIGHT) (2 YEARS AGO)
     Route: 065
  3. TEGRETOL [Suspect]
     Active Substance: CARBAMAZEPINE
     Indication: SEIZURE
     Dosage: 3 DF, QD (SINCE 40 YEARS OLD)
     Route: 048
  4. GARDENAL [Concomitant]
     Active Substance: PHENOBARBITAL
     Indication: SEIZURE
     Dosage: 3 DF, QD
     Route: 048
  5. LAMOTRIGINE. [Concomitant]
     Active Substance: LAMOTRIGINE
     Indication: SEIZURE
     Dosage: 2 DF, QD (ONSET DATE: 2 YEARS AGO)
     Route: 048
  6. TEGRETOL XR [Suspect]
     Active Substance: CARBAMAZEPINE
     Dosage: 1 DF, QD
     Route: 048
  7. GARDENAL [Concomitant]
     Active Substance: PHENOBARBITAL
     Dosage: 1 DF, QD (AT NIGHT) (ONSET DATE: MORE THAN 20 YEARS AGO)
     Route: 048

REACTIONS (34)
  - Pain [Recovered/Resolved]
  - Blindness [Not Recovered/Not Resolved]
  - Erythema [Recovered/Resolved with Sequelae]
  - Pruritus [Recovered/Resolved with Sequelae]
  - Gait inability [Not Recovered/Not Resolved]
  - Wound [Recovered/Resolved with Sequelae]
  - Cataract [Not Recovered/Not Resolved]
  - Knee deformity [Not Recovered/Not Resolved]
  - Gastric ulcer [Not Recovered/Not Resolved]
  - Blood cholesterol increased [Recovered/Resolved]
  - Petit mal epilepsy [Recovered/Resolved]
  - Limb discomfort [Recovered/Resolved with Sequelae]
  - Injury [Recovered/Resolved]
  - Blindness unilateral [Not Recovered/Not Resolved]
  - Rib fracture [Recovered/Resolved with Sequelae]
  - Drug ineffective [Recovered/Resolved]
  - Peripheral swelling [Recovered/Resolved]
  - Arthritis [Not Recovered/Not Resolved]
  - Hypoacusis [Not Recovered/Not Resolved]
  - Syncope [Recovered/Resolved]
  - Abdominal pain upper [Recovered/Resolved]
  - Spinal fracture [Recovered/Resolved with Sequelae]
  - Fall [Recovered/Resolved with Sequelae]
  - Excessive cerumen production [Recovered/Resolved with Sequelae]
  - Effusion [Recovered/Resolved with Sequelae]
  - Venous occlusion [Recovered/Resolved with Sequelae]
  - Hypertension [Not Recovered/Not Resolved]
  - Osteoporosis [Not Recovered/Not Resolved]
  - Off label use [Not Recovered/Not Resolved]
  - Osteoarthritis [Not Recovered/Not Resolved]
  - Deafness [Not Recovered/Not Resolved]
  - Hand fracture [Recovered/Resolved with Sequelae]
  - Vein disorder [Recovered/Resolved with Sequelae]
  - Eye disorder [Unknown]

NARRATIVE: CASE EVENT DATE: 202103
